FAERS Safety Report 5492529-2 (Version None)
Quarter: 2007Q4

REPORT INFORMATION
  Report Type: 
  Country: None (occurrence: None)
  Receive Date: 20071022
  Receipt Date: 20071010
  Transmission Date: 20080405
  Serious: Yes (Death)
  Sender: FDA-Public Use
  Company Number: US-SHR-US-2007-030771

PATIENT
  Age: 63 Year
  Sex: Male
  Weight: 98.866 kg

DRUGS (11)
  1. BETASERON [Suspect]
     Dosage: 8 MIU, EVERY 2D
     Route: 058
     Dates: start: 20040601, end: 20051101
  2. BETASERON [Suspect]
     Dosage: 8 MIU, EVERY 2D
     Route: 058
     Dates: start: 20060201, end: 20070709
  3. ACTOS [Concomitant]
     Dosage: 45 MG, UNK
  4. LANTUS [Concomitant]
  5. ASPIRIN [Concomitant]
     Dosage: 81 MG, UNK
  6. NORVASK [Concomitant]
     Dosage: 10 MG, UNK
  7. TRICOR [Concomitant]
     Dosage: 145 MG, UNK
  8. BENAZEPRIL HYDROCHLORIDE [Concomitant]
     Dosage: 40 MG, UNK
  9. GLYBURIDE AND METFORMIN HCL [Concomitant]
     Dosage: 5/500MG
  10. OMEPRAZOLE [Concomitant]
     Dosage: 20 MG, UNK
  11. PAROXETINE HYDROCHLORIDE [Concomitant]
     Dosage: 40 MG, UNK

REACTIONS (3)
  - ACUTE MYOCARDIAL INFARCTION [None]
  - HEADACHE [None]
  - HYPERTENSIVE HEART DISEASE [None]
